FAERS Safety Report 16201599 (Version 1)
Quarter: 2019Q2

REPORT INFORMATION
  Report Type: Spontaneous
  Country: US (occurrence: US)
  Receive Date: 20190416
  Receipt Date: 20190416
  Transmission Date: 20190711
  Serious: No
  Sender: FDA-Public Use
  Company Number: US-BION-007738

PATIENT
  Sex: Female

DRUGS (1)
  1. ALEVE [Suspect]
     Active Substance: NAPROXEN SODIUM
     Indication: INFLAMMATION
     Dosage: DOSE: 1-2 ONCE A DAY
     Route: 048
     Dates: end: 20180105

REACTIONS (2)
  - Drug effect faster than expected [Unknown]
  - Therapeutic product effect prolonged [Unknown]
